FAERS Safety Report 5335341-7 (Version None)
Quarter: 2007Q2

REPORT INFORMATION
  Report Type: 
  Country: None (occurrence: None)
  Receive Date: 20070327
  Receipt Date: 20060331
  Transmission Date: 20071010
  Serious: Yes (Other)
  Sender: FDA-Public Use
  Company Number: 8016024

PATIENT
  Sex: Male

DRUGS (3)
  1. LORTAB [Suspect]
     Indication: BACK PAIN
     Dosage: PO
     Route: 048
     Dates: start: 20011201
  2. LORTAB [Suspect]
     Indication: CHEST PAIN
     Dosage: PO
     Route: 048
     Dates: start: 20011201
  3. METHADONE HCL [Concomitant]

REACTIONS (8)
  - CONSTIPATION [None]
  - DRUG DEPENDENCE [None]
  - DRUG INEFFECTIVE [None]
  - DRUG WITHDRAWAL SYNDROME [None]
  - INSOMNIA [None]
  - MOOD ALTERED [None]
  - PSYCHOTIC DISORDER [None]
  - SOMNOLENCE [None]
